FAERS Safety Report 6418829-7 (Version None)
Quarter: 2009Q4

REPORT INFORMATION
  Report Type: 
  Country: None (occurrence: None)
  Receive Date: 20091029
  Receipt Date: 20091020
  Transmission Date: 20100525
  Serious: Yes (Hospitalization)
  Sender: FDA-Public Use
  Company Number: BR-ABBOTT-09P-020-0604656-00

PATIENT
  Sex: Female

DRUGS (3)
  1. HUMIRA [Suspect]
     Indication: RHEUMATOID ARTHRITIS
     Dosage: 160MG INDUCTION DOSE
     Route: 058
  2. HUMIRA [Suspect]
     Route: 030
  3. HUMIRA [Suspect]
     Route: 030

REACTIONS (1)
  - HOSPITALISATION [None]
